FAERS Safety Report 8392708-0 (Version None)
Quarter: 2012Q2

REPORT INFORMATION
  Report Type: 
  Country: None (occurrence: None)
  Receive Date: 20120529
  Receipt Date: 20120524
  Transmission Date: 20120825
  Serious: Yes (Life-Threatening, Hospitalization, Other)
  Sender: FDA-Public Use
  Company Number: US-ASTRAZENECA-2012SE11078

PATIENT
  Age: 59 Year
  Sex: Male
  Weight: 70.3 kg

DRUGS (3)
  1. TYLENOL [Concomitant]
     Route: 048
  2. CASODEX [Concomitant]
     Route: 048
  3. ZOLADEX [Suspect]
     Indication: PROSTATE CANCER
     Route: 058
     Dates: start: 20100301

REACTIONS (8)
  - INJECTION SITE HAEMORRHAGE [None]
  - ABASIA [None]
  - INJECTION SITE PAIN [None]
  - APPLICATION SITE HAEMATOMA [None]
  - ABDOMINAL DISTENSION [None]
  - ARTERIAL INJURY [None]
  - ACTIVITIES OF DAILY LIVING IMPAIRED [None]
  - ASTHENIA [None]
